FAERS Safety Report 8992358 (Version 2)
Quarter: 2013Q1

REPORT INFORMATION
  Report Type: Spontaneous
  Country: US (occurrence: US)
  Receive Date: 20121231
  Receipt Date: 20130218
  Transmission Date: 20140127
  Serious: Yes (Hospitalization)
  Sender: FDA-Public Use
  Company Number: US-JNJFOC-20121105053

PATIENT
  Age: 54 None
  Sex: Male
  Weight: 121.56 kg

DRUGS (21)
  1. REMICADE [Suspect]
     Indication: COLITIS ULCERATIVE
     Route: 042
     Dates: start: 20121022
  2. REMICADE [Suspect]
     Indication: COLITIS ULCERATIVE
     Dosage: SECOND INFUSION
     Route: 042
     Dates: start: 20120924
  3. REMICADE [Suspect]
     Indication: COLITIS ULCERATIVE
     Dosage: FIRST DOSE IN HOSPITAL
     Route: 042
     Dates: start: 20120910
  4. LISINOPRIL [Concomitant]
     Indication: BLOOD PRESSURE INCREASED
     Route: 065
     Dates: start: 20120924
  5. SOLU MEDROL [Concomitant]
     Indication: PREMEDICATION
     Route: 042
     Dates: start: 20121022
  6. SOLU MEDROL [Concomitant]
     Indication: PREMEDICATION
     Route: 042
     Dates: start: 20121001
  7. ASACOL [Concomitant]
     Indication: COLITIS ULCERATIVE
     Route: 065
  8. ASACOL [Concomitant]
     Indication: COLITIS ULCERATIVE
     Route: 065
  9. IMURAN [Concomitant]
     Indication: COLITIS ULCERATIVE
     Route: 065
  10. PREDNISONE [Concomitant]
     Indication: PREMEDICATION
     Route: 065
     Dates: end: 20121112
  11. PREDNISONE [Concomitant]
     Indication: PREMEDICATION
     Route: 065
     Dates: start: 201209, end: 201210
  12. PREDNISONE [Concomitant]
     Indication: COLITIS ULCERATIVE
     Route: 065
     Dates: end: 20121112
  13. PREDNISONE [Concomitant]
     Indication: COLITIS ULCERATIVE
     Route: 065
     Dates: start: 201209, end: 201210
  14. CYMBALTA [Concomitant]
     Route: 065
  15. CYMBALTA [Concomitant]
     Route: 065
  16. NEURONTIN [Concomitant]
     Route: 065
  17. NUVIGIL [Concomitant]
     Route: 065
  18. AZATHIOPRINE [Concomitant]
     Indication: COLITIS ULCERATIVE
     Route: 065
  19. ROWASA ENEMA [Concomitant]
     Route: 054
  20. PREDNISONE [Concomitant]
     Indication: COLITIS ULCERATIVE
     Dosage: TAPERED OFF
     Route: 065
  21. PREDNISONE [Concomitant]
     Indication: COLITIS ULCERATIVE
     Route: 065
     Dates: end: 20121211

REACTIONS (9)
  - Infusion related reaction [Recovering/Resolving]
  - Oropharyngeal pain [Recovered/Resolved]
  - Throat tightness [Recovered/Resolved]
  - Dyspnoea [Recovered/Resolved]
  - Blood pressure increased [Recovering/Resolving]
  - Tinnitus [Not Recovered/Not Resolved]
  - Chest pain [Recovered/Resolved]
  - Dizziness [Recovered/Resolved]
  - Headache [Recovered/Resolved]
